FAERS Safety Report 4850664-3 (Version None)
Quarter: 2005Q4

REPORT INFORMATION
  Report Type: 
  Country: None (occurrence: None)
  Receive Date: 20051208
  Receipt Date: 20051208
  Transmission Date: 20060501
  Serious: Yes (Hospitalization)
  Sender: FDA-Public Use
  Company Number: None

PATIENT
  Age: 54 Year
  Sex: Male
  Weight: 78.4723 kg

DRUGS (2)
  1. CIPRO [Suspect]
     Indication: PNEUMONIA ASPIRATION
     Dosage: 200 MG Q 12 H  IV
     Route: 042
     Dates: start: 20051202, end: 20051204
  2. CLINDAMYCIN [Suspect]
     Indication: PNEUMONIA ASPIRATION
     Dosage: 300 MG Q 8 H IV
     Route: 042
     Dates: start: 20051203, end: 20051206

REACTIONS (1)
  - DIARRHOEA [None]
